FAERS Safety Report 6633101-8 (Version None)
Quarter: 2010Q1

REPORT INFORMATION
  Report Type: 
  Country: None (occurrence: None)
  Receive Date: 20100312
  Receipt Date: 20100301
  Transmission Date: 20100710
  Serious: Yes (Hospitalization, Other)
  Sender: FDA-Public Use
  Company Number: PHHY2010MX05473

PATIENT
  Age: 83 Year
  Sex: Female

DRUGS (2)
  1. DIOVAN [Suspect]
     Indication: HYPERTENSION
     Dosage: 1 TABLET (80 MG) PER DAY
     Route: 048
     Dates: start: 20081101
  2. ONOTON [Concomitant]

REACTIONS (7)
  - BLADDER SPASM [None]
  - BRONCHITIS [None]
  - CONDITION AGGRAVATED [None]
  - DYSURIA [None]
  - HYPERTENSION [None]
  - KIDNEY INFECTION [None]
  - MICTURITION URGENCY [None]
